FAERS Safety Report 9457717 (Version 1)
Quarter: 2013Q3

REPORT INFORMATION
  Report Type: Spontaneous
  Country: US (occurrence: None)
  Receive Date: 20130812
  Receipt Date: 20130812
  Transmission Date: 20140515
  Serious: Yes (Hospitalization)
  Sender: FDA-Public Use
  Company Number: None

PATIENT
  Age: 74 Year
  Sex: Male
  Weight: 111 kg

DRUGS (13)
  1. PRADAXA [Suspect]
     Indication: ATRIAL FIBRILLATION
     Dosage: 150MG QD ORAL
     Route: 048
     Dates: start: 20130711, end: 20130807
  2. ALBUTEROL [Concomitant]
  3. AMLODIPINE (NORVASC) [Concomitant]
  4. SYSTOLIC [Concomitant]
  5. DICLOFENAC (VOLTAREN) [Concomitant]
  6. DICLOFENAC POTASSIUM (CATAFLAM) [Concomitant]
  7. DIOVAN [Concomitant]
  8. FUROSEMIDE (LASIX) [Concomitant]
  9. KLOR-CON 10 [Concomitant]
  10. LEVEMIR FLEXPEN [Concomitant]
  11. MOMETASONE-FORMOTEROL (DULERA) [Concomitant]
  12. PRADAXA [Concomitant]
  13. SPIRONOLACTONE (ALDACTONE) [Concomitant]

REACTIONS (10)
  - Rectal haemorrhage [None]
  - Colitis [None]
  - Abdominal pain [None]
  - Vomiting [None]
  - Abdominal distension [None]
  - Diarrhoea [None]
  - Local swelling [None]
  - Urine output decreased [None]
  - Hypophagia [None]
  - Drug ineffective [None]
